FAERS Safety Report 7074230-7 (Version None)
Quarter: 2010Q4

REPORT INFORMATION
  Report Type: 
  Country: None (occurrence: None)
  Receive Date: 20101029
  Receipt Date: 20101019
  Transmission Date: 20110411
  Serious: Yes (Other)
  Sender: FDA-Public Use
  Company Number: AU-ROCHE-735099

PATIENT
  Age: 44 Year
  Sex: Female

DRUGS (6)
  1. HERCEPTIN [Suspect]
     Indication: BREAST CANCER
     Route: 065
     Dates: start: 20060901
  2. FLUOROURACIL [Concomitant]
     Indication: BREAST CANCER
     Dosage: SIX CYCLES
  3. EPIRUBICIN [Concomitant]
     Indication: BREAST CANCER
     Dosage: SIX CYCLES
  4. CYCLOPHOSPHAMIDE [Concomitant]
     Indication: BREAST CANCER
     Dosage: SIX CYCLES
  5. FRUSEMIDE [Concomitant]
  6. PERINDOPRIL ERBUMINE [Concomitant]

REACTIONS (5)
  - DYSPNOEA EXERTIONAL [None]
  - DYSPNOEA PAROXYSMAL NOCTURNAL [None]
  - LEFT VENTRICULAR DYSFUNCTION [None]
  - ORTHOPNOEA [None]
  - WEIGHT INCREASED [None]
